FAERS Safety Report 15079746 (Version 2)
Quarter: 2018Q4

REPORT INFORMATION
  Report Type: Report from Study
  Country: ES (occurrence: ES)
  Receive Date: 20180627
  Receipt Date: 20181219
  Transmission Date: 20190204
  Serious: Yes (Life-Threatening, Hospitalization)
  Sender: FDA-Public Use
  Company Number: ES-SA-2018SA160256

PATIENT
  Age: 72 Year
  Sex: Male

DRUGS (3)
  1. VELMETIA [Concomitant]
     Active Substance: METFORMIN\SITAGLIPTIN
     Dosage: UNK UNK, BID
     Route: 048
  2. INSULIN GLARGINE [Suspect]
     Active Substance: INSULIN GLARGINE
     Indication: TYPE 2 DIABETES MELLITUS
     Dosage: 58 IU, QD
     Route: 058
     Dates: start: 20160507
  3. LANTUS [Suspect]
     Active Substance: INSULIN GLARGINE
     Dosage: 56 IU, QD
     Route: 058
     Dates: start: 20160507

REACTIONS (2)
  - Hyperglycaemia [Recovered/Resolved]
  - Neoplasm prostate [Recovering/Resolving]

NARRATIVE: CASE EVENT DATE: 20180612
